FAERS Safety Report 19855938 (Version 1)
Quarter: 2021Q3

REPORT INFORMATION
  Report Type: Report from Study
  Country: US (occurrence: US)
  Receive Date: 20210920
  Receipt Date: 20210920
  Transmission Date: 20211014
  Serious: Yes (Hospitalization, Other)
  Sender: FDA-Public Use
  Company Number: US-MYLANLABS-2021M1062520

PATIENT
  Sex: Male
  Weight: 177 kg

DRUGS (1)
  1. GLATIRAMER ACETATE INJECTION [Suspect]
     Active Substance: GLATIRAMER ACETATE
     Indication: RELAPSING-REMITTING MULTIPLE SCLEROSIS
     Dosage: 40 MILLIGRAM, 3XW
     Route: 058

REACTIONS (5)
  - Anaemia [Unknown]
  - Product dose omission issue [Unknown]
  - Hepatic cirrhosis [Unknown]
  - Blood disorder [Unknown]
  - Heat stroke [Unknown]

NARRATIVE: CASE EVENT DATE: 2021
